FAERS Safety Report 6523138-1 (Version None)
Quarter: 2009Q4

REPORT INFORMATION
  Report Type: 
  Country: None (occurrence: None)
  Receive Date: 20091222
  Receipt Date: 20091214
  Transmission Date: 20100525
  Serious: Yes (Other)
  Sender: FDA-Public Use
  Company Number: 2009SP036567

PATIENT
  Age: 19 Year
  Sex: Female

DRUGS (3)
  1. IMPLANON [Suspect]
     Indication: CONTRACEPTION
     Dosage: 1 DF,
     Dates: end: 20091026
  2. IMPLANON [Suspect]
     Indication: CONTRACEPTION
     Dosage: 1 DF,
     Dates: start: 20091026, end: 20091109
  3. IMPLANON [Suspect]
     Dosage: 1 DF
     Dates: start: 20091109

REACTIONS (5)
  - DEPRESSED MOOD [None]
  - IMPAIRED WORK ABILITY [None]
  - INJECTED LIMB MOBILITY DECREASED [None]
  - NERVE INJURY [None]
  - PAIN IN EXTREMITY [None]
